FAERS Safety Report 5471731-X (Version None)
Quarter: 2007Q3

REPORT INFORMATION
  Report Type: 
  Country: None (occurrence: None)
  Receive Date: 20070928
  Receipt Date: 20070427
  Transmission Date: 20080115
  Serious: No
  Sender: FDA-Public Use
  Company Number: US-BRISTOL-MYERS SQUIBB COMPANY-13762547

PATIENT
  Age: 24 Year
  Sex: Male
  Weight: 167 kg

DRUGS (4)
  1. DEFINITY [Suspect]
     Indication: STRESS ECHOCARDIOGRAM
     Route: 042
     Dates: start: 20070426, end: 20070426
  2. HYDROCHLOROTHIAZIDE [Concomitant]
  3. LISINOPRIL [Concomitant]
  4. ALBUTEROL [Concomitant]

REACTIONS (3)
  - HYPOTENSION [None]
  - PALLOR [None]
  - URTICARIA [None]
